FAERS Safety Report 21583052 (Version 1)
Quarter: 2022Q4

REPORT INFORMATION
  Report Type: Spontaneous
  Country: US (occurrence: None)
  Receive Date: 20221110
  Receipt Date: 20221110
  Transmission Date: 20230113
  Serious: No
  Sender: FDA-Public Use
  Company Number: None

PATIENT
  Age: 73 Year
  Sex: Male
  Weight: 189 kg

DRUGS (1)
  1. NIRMATRELVIR\RITONAVIR [Suspect]
     Active Substance: NIRMATRELVIR\RITONAVIR
     Dosage: 1 TAB BID PO?
     Route: 048
     Dates: start: 20220909, end: 20220914

REACTIONS (5)
  - Hypotension [None]
  - Drug interaction [None]
  - Asthenia [None]
  - Chest discomfort [None]
  - Dehydration [None]

NARRATIVE: CASE EVENT DATE: 20220910
